FAERS Safety Report 8843057 (Version 1)
Quarter: 2012Q4

REPORT INFORMATION
  Report Type: 
  Country: DE (occurrence: DE)
  Receive Date: 20121016
  Receipt Date: 20121016
  Transmission Date: 20130627
  Serious: Yes (Other)
  Sender: FDA-Public Use
  Company Number: DE-GLAXOSMITHKLINE-D0076775A

PATIENT
  Age: 39 Year
  Sex: Female

DRUGS (3)
  1. VIANI FORTE [Suspect]
     Indication: ASTHMA
     Dosage: 2PUFF Twice per day
     Route: 055
  2. APSOMOL [Suspect]
     Route: 065
  3. XUSAL [Suspect]
     Route: 048

REACTIONS (2)
  - Abortion spontaneous [Unknown]
  - Exposure during pregnancy [Unknown]
